FAERS Safety Report 6265972-1 (Version None)
Quarter: 2009Q3

REPORT INFORMATION
  Report Type: 
  Country: None (occurrence: None)
  Receive Date: 20090709
  Receipt Date: 20090709
  Transmission Date: 20100115
  Serious: Yes (Other)
  Sender: FDA-Public Use
  Company Number: None

PATIENT
  Age: 71 Year
  Sex: Female
  Weight: 98.4 kg

DRUGS (1)
  1. LOVENOX [Suspect]
     Indication: PROPHYLAXIS
     Dosage: 30 DAILY SQ
     Route: 058
     Dates: start: 20090704, end: 20090707

REACTIONS (1)
  - PLATELET COUNT DECREASED [None]
